FAERS Safety Report 20405220 (Version 1)
Quarter: 2022Q1

REPORT INFORMATION
  Report Type: Spontaneous
  Country: US (occurrence: US)
  Receive Date: 20220131
  Receipt Date: 20220131
  Transmission Date: 20220423
  Serious: Yes (Hospitalization)
  Sender: FDA-Public Use
  Company Number: US-PFIZER INC-202200124205

PATIENT
  Age: 71 Year
  Sex: Female
  Weight: 83.91 kg

DRUGS (2)
  1. NITROGLYCERIN [Suspect]
     Active Substance: NITROGLYCERIN
     Indication: Angina pectoris
     Dosage: 0.4 MG, AS NEEDED
     Route: 060
     Dates: start: 2016
  2. NITROGLYCERIN [Suspect]
     Active Substance: NITROGLYCERIN
     Indication: Arterial spasm

REACTIONS (1)
  - Drug ineffective [Recovered/Resolved]
